FAERS Safety Report 8722790 (Version 7)
Quarter: 2014Q1

REPORT INFORMATION
  Report Type: Report from Study
  Country: JP (occurrence: JP)
  Receive Date: 20120814
  Receipt Date: 20140321
  Transmission Date: 20141002
  Serious: Yes (Other)
  Sender: FDA-Public Use
  Company Number: JP-GLAXOSMITHKLINE-B0821907A

PATIENT
  Age: 38 Year
  Sex: Female
  Weight: 93 kg

DRUGS (13)
  1. VOLIBRIS [Suspect]
     Indication: PULMONARY ARTERIAL HYPERTENSION
     Dosage: 2.5MG PER DAY
     Route: 048
     Dates: start: 20120804, end: 20120805
  2. VOLIBRIS [Suspect]
     Indication: PULMONARY ARTERIAL HYPERTENSION
     Dosage: 2.5MG PER DAY
     Route: 048
     Dates: start: 20120919, end: 20130113
  3. VOLIBRIS [Suspect]
     Indication: PULMONARY ARTERIAL HYPERTENSION
     Dosage: 5MG PER DAY
     Route: 048
     Dates: start: 20130114
  4. FLOLAN [Suspect]
     Indication: PULMONARY ARTERIAL HYPERTENSION
     Route: 042
     Dates: start: 20120731
  5. FUROSEMIDE [Suspect]
     Route: 048
  6. BERASUS LA [Concomitant]
     Indication: PULMONARY ARTERIAL HYPERTENSION
     Dosage: 180MCG TWICE PER DAY
     Route: 048
     Dates: end: 20120806
  7. TRACLEER [Concomitant]
     Indication: PULMONARY ARTERIAL HYPERTENSION
     Dosage: 125MG TWICE PER DAY
     Route: 048
     Dates: end: 20120804
  8. ADCIRCA [Concomitant]
     Indication: PULMONARY ARTERIAL HYPERTENSION
     Dosage: 40MG PER DAY
     Route: 048
  9. WARFARIN [Concomitant]
     Indication: THROMBOSIS PROPHYLAXIS
     Dosage: 5MG PER DAY
     Route: 048
     Dates: end: 20130417
  10. FAMOTIDINE [Concomitant]
     Route: 048
     Dates: end: 20120804
  11. LUPRAC [Concomitant]
     Route: 048
     Dates: start: 20130430
  12. BLOPRESS [Concomitant]
     Route: 048
     Dates: start: 20130702
  13. MACACY-A [Concomitant]
     Route: 048

REACTIONS (8)
  - Drug-induced liver injury [Recovering/Resolving]
  - Hepatic function abnormal [Recovering/Resolving]
  - Aspartate aminotransferase increased [Recovering/Resolving]
  - Alanine aminotransferase increased [Recovering/Resolving]
  - Gamma-glutamyltransferase increased [Recovering/Resolving]
  - Blood lactate dehydrogenase increased [Recovering/Resolving]
  - Liver disorder [Recovered/Resolved]
  - Hypokalaemia [Not Recovered/Not Resolved]
